FAERS Safety Report 20767690 (Version 1)
Quarter: 2022Q2

REPORT INFORMATION
  Report Type: Spontaneous
  Country: JP (occurrence: JP)
  Receive Date: 20220429
  Receipt Date: 20220429
  Transmission Date: 20220721
  Serious: Yes (Other)
  Sender: FDA-Public Use
  Company Number: JP-LUPIN PHARMACEUTICALS INC.-2022-06296

PATIENT

DRUGS (5)
  1. METHYLPREDNISOLONE [Suspect]
     Active Substance: METHYLPREDNISOLONE
     Indication: Marginal zone lymphoma
     Dosage: UNK, ADMINISTERED UNDER THE R-ESHAP REGIMEN
     Route: 065
  2. RITUXIMAB [Suspect]
     Active Substance: RITUXIMAB
     Indication: Marginal zone lymphoma
     Dosage: UNK, ADMINISTERED UNDER THE R-ESHAP REGIMEN
     Route: 065
  3. ETOPOSIDE [Suspect]
     Active Substance: ETOPOSIDE
     Indication: Marginal zone lymphoma
     Dosage: UNK, ADMINISTERED UNDER THE R-ESHAP REGIMEN
     Route: 065
  4. CYTARABINE [Suspect]
     Active Substance: CYTARABINE
     Indication: Marginal zone lymphoma
     Dosage: UNK, ADMINISTERED UNDER THE R-ESHAP REGIMEN
     Route: 065
  5. CISPLATIN [Suspect]
     Active Substance: CISPLATIN
     Indication: Marginal zone lymphoma
     Dosage: UNK, ADMINISTERED UNDER THE R-ESHAP REGIMEN
     Route: 065

REACTIONS (1)
  - Myelodysplastic syndrome [Unknown]
